FAERS Safety Report 12623020 (Version 2)
Quarter: 2016Q3

REPORT INFORMATION
  Report Type: Spontaneous
  Country: US (occurrence: US)
  Receive Date: 20160804
  Receipt Date: 20160810
  Transmission Date: 20161109
  Serious: Yes (Hospitalization)
  Sender: FDA-Public Use
  Company Number: US-UNITED THERAPEUTICS-UNT-2016-011111

PATIENT
  Age: 77 Year
  Sex: Female
  Weight: 65.76 kg

DRUGS (3)
  1. TYVASO [Suspect]
     Active Substance: TREPROSTINIL
     Indication: PULMONARY ARTERIAL HYPERTENSION
     Dosage: 72 ?G, QID
     Dates: start: 201411
  2. REVATIO [Concomitant]
     Active Substance: SILDENAFIL CITRATE
     Indication: PRODUCT USED FOR UNKNOWN INDICATION
  3. TYVASO [Suspect]
     Active Substance: TREPROSTINIL
     Indication: PULMONARY HYPERTENSION
     Dosage: 90 ?G, QID
     Dates: start: 20141031

REACTIONS (6)
  - Fluid overload [Recovered/Resolved]
  - Product use issue [Unknown]
  - Dyspnoea [Recovered/Resolved]
  - Oedema peripheral [Recovered/Resolved]
  - International normalised ratio decreased [Recovered/Resolved]
  - Cellulitis [Unknown]

NARRATIVE: CASE EVENT DATE: 20160709
